FAERS Safety Report 9028341 (Version 1)
Quarter: 2013Q1

REPORT INFORMATION
  Report Type: Spontaneous
  Country: US (occurrence: US)
  Receive Date: 20130124
  Receipt Date: 20130124
  Transmission Date: 20140127
  Serious: No
  Sender: FDA-Public Use
  Company Number: US-BAUSCH-BL-2012-001711

PATIENT
  Age: 85 Year
  Sex: Female
  Weight: 54.48 kg

DRUGS (2)
  1. ALAWAY [Suspect]
     Indication: EYE PRURITUS
     Dosage: 1 DROP; DAILY; OPHTHALMIC
     Route: 047
     Dates: start: 20120822, end: 20120929
  2. POLYVINYL ALCOHOL [Concomitant]
     Indication: DRY EYE
     Dosage: 1 DOSAGE FORM; AT BEDTIME; OPHTHALMIC
     Route: 047
     Dates: start: 2010

REACTIONS (2)
  - Wrong technique in drug usage process [Unknown]
  - Drug ineffective [Unknown]
